FAERS Safety Report 4263646-X (Version None)
Quarter: 2004Q1

REPORT INFORMATION
  Report Type: 
  Country: None (occurrence: None)
  Receive Date: 20040102
  Receipt Date: 20031224
  Transmission Date: 20041129
  Serious: Yes (Other)
  Sender: FDA-Public Use
  Company Number: HQWYE621815DEC03

PATIENT
  Age: 58 Year
  Sex: Male

DRUGS (5)
  1. ETODOLAC [Suspect]
     Indication: INFLAMMATION
     Dosage: 400 MG TABLET/DAY
     Route: 048
     Dates: end: 20031204
  2. ETODOLAC [Suspect]
     Indication: PAIN
     Dosage: 400 MG TABLET/DAY
     Route: 048
     Dates: end: 20031204
  3. URSO [Concomitant]
  4. GLYCYRON (AMINOACETIC ACID/DL-METHIONINE/GLYCYRRHIZIC ACID) [Concomitant]
  5. PRORENAL (LIMAPROST) [Concomitant]

REACTIONS (2)
  - GRANULOCYTOPENIA [None]
  - WHITE BLOOD CELL COUNT DECREASED [None]
